FAERS Safety Report 9406210 (Version 2)
Quarter: 2013Q3

REPORT INFORMATION
  Report Type: Report from Study
  Country: DE (occurrence: DE)
  Receive Date: 20130717
  Receipt Date: 20130903
  Transmission Date: 20140515
  Serious: Yes (Hospitalization)
  Sender: FDA-Public Use
  Company Number: DE-ABBOTT-13P-062-1118295-00

PATIENT
  Age: 29 Year
  Sex: Female
  Weight: 96 kg

DRUGS (4)
  1. HUMIRA [Suspect]
     Indication: PSORIATIC ARTHROPATHY
     Route: 058
     Dates: start: 20120123
  2. METHOTREXATE [Concomitant]
     Indication: PSORIATIC ARTHROPATHY
     Dates: start: 201210
  3. ARCOXIA [Concomitant]
     Indication: PSORIATIC ARTHROPATHY
     Dates: start: 201212
  4. DICLOFENAC [Concomitant]
     Indication: PSORIATIC ARTHROPATHY
     Dates: start: 200801, end: 201212

REACTIONS (1)
  - Biliary colic [Recovered/Resolved]
